FAERS Safety Report 10740029 (Version 1)
Quarter: 2015Q1

REPORT INFORMATION
  Report Type: Spontaneous
  Country: US (occurrence: US)
  Receive Date: 20150127
  Receipt Date: 20150127
  Transmission Date: 20150721
  Serious: Yes (Other)
  Sender: FDA-Public Use
  Company Number: US-JNJFOC-20150111174

PATIENT
  Age: 23 Year
  Sex: Female

DRUGS (1)
  1. TYLENOL EXTRA STRENGTH [Suspect]
     Active Substance: ACETAMINOPHEN
     Indication: PRODUCT USED FOR UNKNOWN INDICATION
     Dosage: 7-15: 500 MG; 3.5 - 7.5 GM TOTAL DAILY DOSE
     Route: 048

REACTIONS (2)
  - Overdose [Unknown]
  - Suicidal ideation [Unknown]
